FAERS Safety Report 8577573 (Version 3)
Quarter: 2012Q4

REPORT INFORMATION
  Report Type: 
  Country: US (occurrence: US)
  Receive Date: 20120524
  Receipt Date: 20120927
  Transmission Date: 20130627
  Serious: Yes (Hospitalization)
  Sender: FDA-Public Use
  Company Number: US-BAYER-2012-050328

PATIENT
  Age: 38 Year
  Sex: Female
  Weight: 90.25 kg

DRUGS (20)
  1. YAZ [Suspect]
     Indication: MENSTRUAL CYCLE MANAGEMENT
     Dosage: UNK
     Dates: start: 201108
  2. BEYAZ [Suspect]
     Indication: PREMENSTRUAL SYNDROME
     Dosage: UNK
     Dates: start: 201108, end: 20111201
  3. BEYAZ [Suspect]
     Indication: PREMENSTRUAL SYNDROME
  4. ROBAXIN [Concomitant]
     Dosage: 500 mg, TID
     Route: 048
  5. TORADOL [Concomitant]
     Indication: MUSCULOSKELETAL PAIN
     Dosage: 10 mg, QID PRN
     Route: 048
  6. PROTONIX [Concomitant]
     Dosage: 40 mg, daily
     Route: 048
  7. NEXIUM [Concomitant]
     Indication: GASTROOESOPHAGEAL REFLUX DISEASE
     Dosage: 40 mg, daily
     Route: 048
     Dates: start: 2001
  8. ZOLOFT [Concomitant]
     Indication: ANXIETY
     Dosage: 100 mg, daily
     Route: 048
     Dates: start: 201107
  9. IBUPROFEN [Concomitant]
     Indication: PAIN
     Dosage: 800 mg, TID as needed
     Route: 048
     Dates: start: 20111116
  10. IBUPROFEN [Concomitant]
     Indication: PAIN
     Dosage: 400 mg, Q4HR
     Route: 048
     Dates: start: 20111116
  11. SINUS [Concomitant]
     Indication: NASAL CONGESTION
     Dosage: 2 pills every 6 hours
     Dates: start: 20111117, end: 20111120
  12. LORATADINE/PSEUDOEPHEDRINE SULFATE [Concomitant]
     Indication: SINUS DISORDER
     Dosage: 1 pill 12 hours
     Dates: start: 201111
  13. CEFTIN [Concomitant]
  14. ANTIBIOTICS [Concomitant]
     Indication: PNEUMONIA
     Route: 042
  15. NASONEX [Concomitant]
  16. SINGULAIR [Concomitant]
  17. CEFTRIAXONE [Concomitant]
     Dosage: 250 mg, UNK
     Route: 030
  18. CELESTONE [Concomitant]
     Dosage: 6 mg, UNK
     Route: 030
  19. OMNICEF [Concomitant]
     Dosage: 300 mg, BID
  20. DICLOFENAC POTASSIUM [Concomitant]
     Dosage: 25 mg, BID

REACTIONS (9)
  - Pulmonary embolism [None]
  - Pain [None]
  - Injury [None]
  - General physical health deterioration [None]
  - Anxiety [None]
  - Emotional distress [None]
  - Anhedonia [None]
  - Dyspnoea [None]
  - Pain [None]
